FAERS Safety Report 9154226 (Version 1)
Quarter: 2013Q1

REPORT INFORMATION
  Report Type: Spontaneous
  Country: US (occurrence: US)
  Receive Date: 20130311
  Receipt Date: 20130311
  Transmission Date: 20140127
  Serious: No
  Sender: FDA-Public Use
  Company Number: US-PFIZER INC-2013079330

PATIENT
  Age: 55 Year
  Sex: Male
  Weight: 93.42 kg

DRUGS (3)
  1. CELEBREX [Suspect]
     Indication: ARTHRITIS
     Dosage: 200 MG, 2X/DAY
     Dates: end: 2011
  2. XANAX [Suspect]
     Indication: ANXIETY
     Dosage: 1 MG, 3X/DAY
  3. AUGMENTIN [Concomitant]
     Indication: PAIN
     Dosage: 1 MG, 3X/DAY

REACTIONS (2)
  - Pain [Unknown]
  - Blood glucose abnormal [Unknown]
